FAERS Safety Report 9173612 (Version 2)
Quarter: 2013Q1

REPORT INFORMATION
  Report Type: Spontaneous
  Country: GB (occurrence: None)
  Receive Date: 20130131
  Receipt Date: 20130220
  Transmission Date: 20140127
  Serious: Yes (Hospitalization)
  Sender: FDA-Public Use
  Company Number: 2013034559

PATIENT
  Age: 44 Year
  Sex: Female

DRUGS (2)
  1. PRIVIGEN [Suspect]
     Indication: MULTIFOCAL MOTOR NEUROPATHY
     Dosage: (NOT OTHERWISE SPECIFIED)
     Route: 042
     Dates: start: 20130107, end: 20130109
  2. PRIVIGEN [Suspect]
     Dosage: (NOT OTHERWISE SPECIFIED)
     Route: 042
     Dates: start: 20130107, end: 20130109

REACTIONS (5)
  - Headache [None]
  - Musculoskeletal stiffness [None]
  - Photophobia [None]
  - Vomiting [None]
  - Meningitis aseptic [None]
